FAERS Safety Report 7181800-4 (Version None)
Quarter: 2010Q4

REPORT INFORMATION
  Report Type: 
  Country: None (occurrence: None)
  Receive Date: 20101221
  Receipt Date: 20100430
  Transmission Date: 20110411
  Serious: No
  Sender: FDA-Public Use
  Company Number: US-AMGEN-TCS406663

PATIENT

DRUGS (2)
  1. ENBREL [Suspect]
     Indication: PSORIASIS
     Dosage: 50 MG, QWK
     Route: 058
     Dates: start: 20091120
  2. LISINOPRIL [Concomitant]
     Dosage: 10 MG, UNK
     Dates: start: 20080401

REACTIONS (9)
  - INJECTION SITE ERYTHEMA [None]
  - INJECTION SITE RASH [None]
  - INJECTION SITE SWELLING [None]
  - INJECTION SITE URTICARIA [None]
  - ORAL FUNGAL INFECTION [None]
  - PSORIASIS [None]
  - RASH [None]
  - SWELLING FACE [None]
  - TOOTH ABSCESS [None]
